FAERS Safety Report 16845357 (Version 1)
Quarter: 2019Q4

REPORT INFORMATION
  Report Type: Spontaneous
  Country: US (occurrence: US)
  Receive Date: 20190924
  Receipt Date: 20190924
  Transmission Date: 20200122
  Serious: Yes (Disabling, Other)
  Sender: FDA-Public Use
  Company Number: None

PATIENT
  Age: 66 Year
  Sex: Female
  Weight: 69.3 kg

DRUGS (4)
  1. ASMANEX [Suspect]
     Active Substance: MOMETASONE FUROATE
     Indication: BRONCHIAL HYPERREACTIVITY
     Route: 055
     Dates: start: 20120612, end: 20190902
  2. HERBAL TEAS [Concomitant]
     Active Substance: HERBALS
  3. CHIA SEEDS [Concomitant]
     Active Substance: OMEGA-3 FATTY ACIDS
  4. VITAMINS [Concomitant]
     Active Substance: VITAMINS

REACTIONS (5)
  - Retinal tear [None]
  - Insurance issue [None]
  - Conjunctivitis [None]
  - Cataract nuclear [None]
  - Exposure to toxic agent [None]

NARRATIVE: CASE EVENT DATE: 20150828
